FAERS Safety Report 6371194-6 (Version None)
Quarter: 2009Q3

REPORT INFORMATION
  Report Type: 
  Country: None (occurrence: None)
  Receive Date: 20090923
  Receipt Date: 20071210
  Transmission Date: 20100115
  Serious: Yes (Other)
  Sender: FDA-Public Use
  Company Number: US-ASTRAZENECA-2007UW05628

PATIENT
  Age: 367 Month
  Sex: Female
  Weight: 48.1 kg

DRUGS (16)
  1. SEROQUEL [Suspect]
     Indication: BIPOLAR DISORDER
     Route: 048
     Dates: start: 20000101
  2. SEROQUEL [Suspect]
     Indication: DEPRESSION
     Route: 048
     Dates: start: 20000101
  3. SEROQUEL [Suspect]
     Dosage: 25-200 MG
     Route: 048
     Dates: start: 20040210
  4. SEROQUEL [Suspect]
     Dosage: 25-200 MG
     Route: 048
     Dates: start: 20040210
  5. ZYPREXA [Suspect]
     Indication: BIPOLAR DISORDER
  6. ZYPREXA [Suspect]
     Indication: DEPRESSION
  7. ZEMURON [Concomitant]
     Dosage: 2-5 MG
  8. PROZAC [Concomitant]
     Dosage: 20-60 MG
     Route: 048
  9. ESKALITH [Concomitant]
     Route: 048
  10. HALDOL [Concomitant]
  11. NICOTINE [Concomitant]
     Dosage: 21 MG/HR (TRANSDERMAL SYSTEM)
  12. ATIVAN [Concomitant]
     Route: 048
  13. NALTREXONE HYDROCHLORIDE [Concomitant]
  14. DESYREL [Concomitant]
     Indication: SLEEP DISORDER
     Dosage: 50-100 MG
  15. GEODON [Concomitant]
  16. METFORMIN HCL [Concomitant]

REACTIONS (1)
  - PANCREATITIS ACUTE [None]
